FAERS Safety Report 11468584 (Version 1)
Quarter: 2015Q3

REPORT INFORMATION
  Report Type: Spontaneous
  Country: US (occurrence: US)
  Receive Date: 20150908
  Receipt Date: 20150908
  Transmission Date: 20151125
  Serious: Yes (Hospitalization, Other)
  Sender: FDA-Public Use
  Company Number: US-GLAXOSMITHKLINE-US2015GSK126025

PATIENT
  Age: 37 Year
  Sex: Female

DRUGS (2)
  1. FLOLAN [Suspect]
     Active Substance: EPOPROSTENOL SODIUM
     Indication: PULMONARY ARTERIAL HYPERTENSION
     Dosage: 5 NG/KG/MIN CONTINUOUS; CONCENTRATION: 15,000 NG/ML; PUMP RATE: 62 ML/DAY; VIAL STRENGTH: 1.5 MG
     Route: 042
     Dates: start: 20150828
  2. LETAIRIS [Concomitant]
     Active Substance: AMBRISENTAN

REACTIONS (11)
  - Pain in jaw [Not Recovered/Not Resolved]
  - Dizziness [Recovering/Resolving]
  - Product preparation error [Unknown]
  - Hospitalisation [Unknown]
  - Decreased appetite [Not Recovered/Not Resolved]
  - Feeling hot [Unknown]
  - Headache [Not Recovered/Not Resolved]
  - Diarrhoea [Unknown]
  - Fatigue [Not Recovered/Not Resolved]
  - Device use error [Unknown]
  - Flushing [Not Recovered/Not Resolved]

NARRATIVE: CASE EVENT DATE: 201508
